FAERS Safety Report 17639473 (Version 1)
Quarter: 2020Q2

REPORT INFORMATION
  Report Type: Spontaneous
  Country: US (occurrence: US)
  Receive Date: 20200407
  Receipt Date: 20200407
  Transmission Date: 20200713
  Serious: No
  Sender: FDA-Public Use
  Company Number: US-VERTEX PHARMACEUTICALS-2019-009922

PATIENT
  Age: 22 Year
  Sex: Male

DRUGS (1)
  1. SYMDEKO [Suspect]
     Active Substance: IVACAFTOR\TEZACAFTOR
     Indication: CYSTIC FIBROSIS
     Dosage: UNK, BID
     Route: 048
     Dates: start: 20190813, end: 20191101

REACTIONS (12)
  - Product dose omission [Recovered/Resolved]
  - Increased bronchial secretion [Unknown]
  - Nasopharyngitis [Unknown]
  - Anal incontinence [Recovered/Resolved]
  - Abdominal discomfort [Unknown]
  - Insomnia [Unknown]
  - Muscle strain [Recovered/Resolved]
  - Chest discomfort [Unknown]
  - Sputum increased [Recovered/Resolved]
  - Abdominal pain upper [Unknown]
  - Cough [Recovered/Resolved]
  - Diarrhoea [Unknown]

NARRATIVE: CASE EVENT DATE: 2019
